FAERS Safety Report 22178527 (Version 1)
Quarter: 2023Q2

REPORT INFORMATION
  Report Type: Spontaneous
  Country: US (occurrence: US)
  Receive Date: 20230405
  Receipt Date: 20230405
  Transmission Date: 20230722
  Serious: Yes (Other)
  Sender: FDA-Public Use
  Company Number: US-JNJFOC-20230375208

PATIENT
  Age: 42 Year
  Sex: Female
  Weight: 94.432 kg

DRUGS (1)
  1. SPRAVATO [Suspect]
     Active Substance: ESKETAMINE
     Indication: Depression
     Dosage: 56 MG, 11 TOTAL DOSES . FREQUENCY GIVEN AS 2 WEEKS
     Dates: start: 20221101, end: 20230329

REACTIONS (1)
  - Cataract [Unknown]
